FAERS Safety Report 16895951 (Version 1)
Quarter: 2019Q4

REPORT INFORMATION
  Report Type: Spontaneous
  Country: US (occurrence: US)
  Receive Date: 20191008
  Receipt Date: 20191008
  Transmission Date: 20200122
  Serious: No
  Sender: FDA-Public Use
  Company Number: US-PERRIGO-18US014120

PATIENT
  Age: 41 Year
  Sex: Female
  Weight: 61.22 kg

DRUGS (8)
  1. IMIQUIMOD. [Suspect]
     Active Substance: IMIQUIMOD
     Dosage: 6.25 MG, THREE TIMES WEEKLY
     Route: 061
     Dates: start: 20181119, end: 20181201
  2. PROBIOTICS NOS [Concomitant]
     Active Substance: PROBIOTICS NOS
     Indication: SUPPLEMENTATION THERAPY
     Dosage: UNK
     Route: 048
     Dates: start: 2014
  3. IMIQUIMOD. [Suspect]
     Active Substance: IMIQUIMOD
     Indication: VULVOVAGINAL HUMAN PAPILLOMA VIRUS INFECTION
     Dosage: UNKNOWN, UNKNOWN
     Route: 061
     Dates: start: 2016, end: 2016
  4. LYSINE [Concomitant]
     Active Substance: LYSINE
     Indication: SUPPLEMENTATION THERAPY
     Dosage: 500 MG
     Route: 048
     Dates: start: 2014
  5. FISH OIL [Concomitant]
     Active Substance: FISH OIL
     Indication: SUPPLEMENTATION THERAPY
     Dosage: UNK
     Route: 048
     Dates: start: 2014
  6. VITAMIN D NOS [Concomitant]
     Active Substance: VITAMIN D NOS
     Indication: SUPPLEMENTATION THERAPY
     Dosage: 1000 IU
     Route: 048
     Dates: start: 2014
  7. IMIQUIMOD. [Suspect]
     Active Substance: IMIQUIMOD
     Dosage: APPROXIMATELY 4 MG, ONCE WEEKLY
     Route: 061
     Dates: start: 20180912, end: 20180919
  8. IMIQUIMOD. [Suspect]
     Active Substance: IMIQUIMOD
     Dosage: APPROXIMATELY 4 MG, TWICE WEEKLY
     Route: 061
     Dates: start: 20180924, end: 201810

REACTIONS (16)
  - Pyrexia [Recovered/Resolved]
  - Arthralgia [Not Recovered/Not Resolved]
  - Back pain [Not Recovered/Not Resolved]
  - Application site erythema [Recovering/Resolving]
  - Paraesthesia [Recovering/Resolving]
  - Pain in extremity [Not Recovered/Not Resolved]
  - Bone pain [Recovering/Resolving]
  - Dysphonia [Recovered/Resolved]
  - Chest pain [Recovered/Resolved]
  - Inappropriate schedule of product administration [Recovered/Resolved]
  - Musculoskeletal chest pain [Recovered/Resolved]
  - Myalgia [Not Recovered/Not Resolved]
  - Abdominal pain [Recovered/Resolved]
  - Vulvovaginal pain [Recovered/Resolved]
  - Nausea [Recovered/Resolved]
  - Application site pruritus [Recovering/Resolving]

NARRATIVE: CASE EVENT DATE: 2016
